FAERS Safety Report 9266689 (Version 1)
Quarter: 2013Q2

REPORT INFORMATION
  Report Type: Spontaneous
  Country: JP (occurrence: JP)
  Receive Date: 20130502
  Receipt Date: 20130502
  Transmission Date: 20140414
  Serious: Yes (Death, Other)
  Sender: FDA-Public Use
  Company Number: JP-PFIZER INC-2013069384

PATIENT
  Age: 76 Year
  Sex: Female

DRUGS (1)
  1. CELECOX [Suspect]
     Indication: RHEUMATOID ARTHRITIS
     Dosage: 200 MG, DAILY
     Route: 048
     Dates: start: 2012, end: 20130128

REACTIONS (2)
  - Intestinal obstruction [Fatal]
  - Blood creatine phosphokinase increased [Recovering/Resolving]
